FAERS Safety Report 8587767-6 (Version None)
Quarter: 2012Q3

REPORT INFORMATION
  Report Type: 
  Country: None (occurrence: None)
  Receive Date: 20120813
  Receipt Date: 20120802
  Transmission Date: 20120928
  Serious: Yes (Hospitalization)
  Sender: FDA-Public Use
  Company Number: GB-009507513-1207GBR004584

PATIENT

DRUGS (15)
  1. OMEPRAZOLE [Concomitant]
  2. CYCLIZINE [Concomitant]
  3. DEXAMETHASONE [Suspect]
     Indication: METASTASES TO CENTRAL NERVOUS SYSTEM
     Dosage: 16 MG, QD
     Route: 048
     Dates: start: 20120620, end: 20120624
  4. DEXAMETHASONE [Suspect]
     Dosage: 6 MG, QD
     Route: 048
     Dates: start: 20120701, end: 20120702
  5. ALLOPURINOL [Concomitant]
  6. METOCLOPRAMIDE [Concomitant]
  7. PEPTAC (CALCIUM CARBONATE (+) SODIUM ALGINATE (+) SODIUM BICARBONATE) [Concomitant]
  8. DEXAMETHASONE [Suspect]
     Dosage: 12 MG, QD
     Route: 048
     Dates: start: 20120625, end: 20120626
  9. DEXAMETHASONE [Suspect]
     Dosage: 8 MG, QD
     Route: 048
     Dates: start: 20120629, end: 20120630
  10. DEXAMETHASONE [Suspect]
     Dosage: 10 MG, QD
     Route: 048
     Dates: start: 20120627, end: 20120628
  11. AMLODIPINE [Concomitant]
  12. DEXAMETHASONE [Suspect]
     Dosage: 3 MG, QD
     Route: 048
     Dates: start: 20120703
  13. METOPROLOL TARTRATE [Concomitant]
  14. ACETAMINOPHEN [Concomitant]
  15. ACIDEX (CIMETIDINE) [Concomitant]

REACTIONS (3)
  - SUBSTANCE-INDUCED PSYCHOTIC DISORDER [None]
  - DELUSION [None]
  - HALLUCINATION, VISUAL [None]
